FAERS Safety Report 8766847 (Version 1)
Quarter: 2012Q4

REPORT INFORMATION
  Report Type: 
  Country: BR (occurrence: BR)
  Receive Date: 20120904
  Receipt Date: 20120904
  Transmission Date: 20130627
  Serious: Yes (Hospitalization)
  Sender: FDA-Public Use
  Company Number: PHHY2012BR075500

PATIENT
  Age: 72 Year
  Sex: Male

DRUGS (1)
  1. FORASEQ [Suspect]
     Dosage: 12/400 ?g

REACTIONS (15)
  - Chronic obstructive pulmonary disease [Recovering/Resolving]
  - Confusional state [Recovering/Resolving]
  - Depression [Recovering/Resolving]
  - Pneumonia [Recovering/Resolving]
  - Dyspnoea [Recovering/Resolving]
  - Wheezing [Recovering/Resolving]
  - Cough [Recovering/Resolving]
  - Sputum purulent [Recovering/Resolving]
  - Respiratory acidosis [Recovering/Resolving]
  - Hypoxia [Recovering/Resolving]
  - Hypercapnia [Recovering/Resolving]
  - Productive cough [Recovering/Resolving]
  - Gait disturbance [Recovering/Resolving]
  - Dyspnoea exertional [Recovering/Resolving]
  - Lung hyperinflation [Recovering/Resolving]
